FAERS Safety Report 4385252-9 (Version None)
Quarter: 2004Q2

REPORT INFORMATION
  Report Type: 
  Country: None (occurrence: None)
  Receive Date: 20040625
  Receipt Date: 20040616
  Transmission Date: 20050107
  Serious: Yes (Death, Other)
  Sender: FDA-Public Use
  Company Number: JP-MERCK-0406USA01780

PATIENT
  Age: 7 Day
  Sex: Male
  Weight: 1 kg

DRUGS (3)
  1. BERACTANT [Concomitant]
     Indication: NEONATAL RESPIRATORY DISTRESS SYNDROME
     Route: 065
  2. INDOCIN I.V. [Suspect]
     Indication: PATENT DUCTUS ARTERIOSUS
     Route: 042
  3. TOLAZOLINE HYDROCHLORIDE [Concomitant]
     Indication: PATENT DUCTUS ARTERIOSUS
     Route: 065

REACTIONS (6)
  - DRUG INEFFECTIVE [None]
  - ILEAL PERFORATION [None]
  - NEONATAL DISORDER [None]
  - PERSISTENT FOETAL CIRCULATION [None]
  - PULMONARY HYPERTENSION [None]
  - SMALL INTESTINAL OBSTRUCTION [None]
